FAERS Safety Report 9999530 (Version 1)
Quarter: 2014Q1

REPORT INFORMATION
  Report Type: Spontaneous
  Country: US (occurrence: US)
  Receive Date: 20140312
  Receipt Date: 20140312
  Transmission Date: 20141002
  Serious: No
  Sender: FDA-Public Use
  Company Number: US-TEVA-454991USA

PATIENT
  Sex: Female

DRUGS (18)
  1. AMOXICILLIN [Suspect]
  2. OXYBUTYNIN [Suspect]
  3. PHENYTOIN [Concomitant]
     Indication: CONVULSION
     Dosage: 3 AT BEDTIME
  4. PROTONIX [Concomitant]
     Indication: GASTRITIS
     Dosage: 40 MILLIGRAM DAILY; AM BEFORE BREAKFAST
  5. BABY ASPIRIN [Concomitant]
     Dosage: 81 MILLIGRAM DAILY;
  6. CARBAMAZEPINE [Concomitant]
     Indication: CONVULSION
     Dosage: 400 MILLIGRAM DAILY;
  7. CARBAMAZEPINE [Concomitant]
     Indication: DEPRESSION
  8. FLUOXETINE [Concomitant]
     Indication: DEPRESSION
     Dosage: 40 MILLIGRAM DAILY;
  9. TRAZODONE [Concomitant]
     Indication: SLEEP DISORDER
     Dosage: 80 MILLIGRAM DAILY;
  10. CELEBREX [Concomitant]
     Indication: ARTHRITIS
  11. TRAMADOL [Concomitant]
     Indication: PAIN
     Dosage: ONE IF NEEDED FOR PAIN
  12. GABAPENTIN [Concomitant]
     Indication: BACK PAIN
     Dosage: 600 MILLIGRAM DAILY;
  13. GABAPENTIN [Concomitant]
     Indication: PAIN IN EXTREMITY
  14. VESICARE [Concomitant]
     Indication: HYPERTONIC BLADDER
     Dosage: 5 MILLIGRAM DAILY; ONE TAB HS
  15. LORATADINE [Concomitant]
     Indication: HYPERSENSITIVITY
     Dosage: 10 MILLIGRAM DAILY;
  16. LORATADINE [Concomitant]
     Indication: SINUS DISORDER
  17. ACIDOPHILUS [Concomitant]
     Indication: IRRITABLE BOWEL SYNDROME
     Dosage: 200 MILLIGRAM DAILY;
  18. VITAMIN D [Concomitant]
     Dosage: 50,000U TWICE A MONTH

REACTIONS (1)
  - Drug hypersensitivity [Unknown]
